FAERS Safety Report 6966737-5 (Version None)
Quarter: 2010Q3

REPORT INFORMATION
  Report Type: 
  Country: None (occurrence: None)
  Receive Date: 20100906
  Receipt Date: 20100831
  Transmission Date: 20110219
  Serious: Yes (Hospitalization)
  Sender: FDA-Public Use
  Company Number: US-BRISTOL-MYERS SQUIBB COMPANY-15263718

PATIENT
  Age: 12 Year
  Sex: Female
  Weight: 80 kg

DRUGS (4)
  1. DASATINIB [Suspect]
     Indication: ACUTE LYMPHOCYTIC LEUKAEMIA
     Dosage: DOSAGE:ON DAYS1-14 AND 29-42
     Route: 048
     Dates: start: 20100406, end: 20100811
  2. HYDROCORTISONE [Suspect]
     Indication: ACUTE LYMPHOCYTIC LEUKAEMIA
     Dosage: GIVEN IN IIT
     Route: 039
     Dates: start: 20100728, end: 20100728
  3. CYTARABINE [Suspect]
     Indication: ACUTE LYMPHOCYTIC LEUKAEMIA
     Route: 039
     Dates: start: 20100728, end: 20100728
  4. METHOTREXATE [Suspect]
     Indication: ACUTE LYMPHOCYTIC LEUKAEMIA
     Dosage: 9750 MG HD 29JUL10 15 MG ITT ON 28JUL10
     Route: 048
     Dates: start: 20100728, end: 20100729

REACTIONS (2)
  - HYPOXIA [None]
  - MUCOSAL INFLAMMATION [None]
